FAERS Safety Report 6002811-8 (Version None)
Quarter: 2008Q4

REPORT INFORMATION
  Report Type: 
  Country: None (occurrence: None)
  Receive Date: 20081215
  Receipt Date: 20071107
  Transmission Date: 20090506
  Serious: No
  Sender: FDA-Public Use
  Company Number: US-AMGEN-KDL251607

PATIENT
  Sex: Female

DRUGS (2)
  1. ENBREL [Suspect]
     Indication: PSORIATIC ARTHROPATHY
     Route: 058
     Dates: start: 20040901
  2. ENBREL [Suspect]
     Indication: PSORIASIS

REACTIONS (7)
  - COGNITIVE DISORDER [None]
  - COLD SWEAT [None]
  - DIZZINESS [None]
  - NASOPHARYNGITIS [None]
  - PYREXIA [None]
  - RESPIRATORY TRACT CONGESTION [None]
  - SINUS HEADACHE [None]
